FAERS Safety Report 5175964-1 (Version None)
Quarter: 2006Q4

REPORT INFORMATION
  Report Type: 
  Country: None (occurrence: None)
  Receive Date: 20061215
  Receipt Date: 20060707
  Transmission Date: 20070319
  Serious: No
  Sender: FDA-Public Use
  Company Number: US-AMGEN-KDL185542

PATIENT
  Sex: Male

DRUGS (2)
  1. ENBREL [Suspect]
     Indication: REITER'S SYNDROME
     Route: 058
     Dates: start: 20060301
  2. METHOTREXATE [Concomitant]
     Dates: start: 20040101

REACTIONS (1)
  - ARTHRALGIA [None]
